FAERS Safety Report 7813005-5 (Version None)
Quarter: 2011Q4

REPORT INFORMATION
  Report Type: 
  Country: None (occurrence: None)
  Receive Date: 20111013
  Receipt Date: 20110927
  Transmission Date: 20120403
  Serious: Yes (Other)
  Sender: FDA-Public Use
  Company Number: GB-ROCHE-1000376

PATIENT
  Age: 53 Year
  Sex: Female

DRUGS (3)
  1. IBANDRONATE SODIUM [Suspect]
     Indication: BREAST CANCER METASTATIC
     Dates: start: 20070501
  2. BONEFOS [Suspect]
     Indication: BREAST CANCER METASTATIC
     Dates: start: 20060101, end: 20070501
  3. BONEFOS [Suspect]

REACTIONS (3)
  - OROANTRAL FISTULA [None]
  - OSTEONECROSIS [None]
  - INFECTION [None]
